FAERS Safety Report 21654127 (Version 6)
Quarter: 2023Q1

REPORT INFORMATION
  Report Type: Report from Study
  Country: CO (occurrence: CO)
  Receive Date: 20221129
  Receipt Date: 20230109
  Transmission Date: 20230418
  Serious: Yes (Death, Hospitalization, Other)
  Sender: FDA-Public Use
  Company Number: CO-ABBVIE-22K-036-4516346-00

PATIENT
  Age: 69 Year
  Sex: Female

DRUGS (3)
  1. VENCLEXTA [Suspect]
     Active Substance: VENETOCLAX
     Indication: Acute myeloid leukaemia
     Dosage: FORM STRENGTH: 100 MILLIGRAM
     Route: 048
     Dates: start: 20220702, end: 20221119
  2. RIVOTRIL [Concomitant]
     Active Substance: CLONAZEPAM
     Indication: Depression
     Route: 048
  3. ACETAMINOPHEN [Concomitant]
     Active Substance: ACETAMINOPHEN
     Indication: Pyrexia
     Route: 048
     Dates: start: 20221203, end: 20221203

REACTIONS (14)
  - Death [Fatal]
  - Bone marrow disorder [Recovering/Resolving]
  - Haemorrhoids [Recovering/Resolving]
  - Fluid retention [Recovering/Resolving]
  - Thrombocytopenia [Recovering/Resolving]
  - Haemoglobin decreased [Recovering/Resolving]
  - Colitis [Recovering/Resolving]
  - Neutropenia [Recovering/Resolving]
  - Bacterial infection [Recovering/Resolving]
  - Gastrointestinal pain [Recovering/Resolving]
  - Influenza [Recovering/Resolving]
  - Oedema [Recovering/Resolving]
  - Pharyngeal inflammation [Recovering/Resolving]
  - General physical health deterioration [Not Recovered/Not Resolved]

NARRATIVE: CASE EVENT DATE: 20220816
